FAERS Safety Report 6690200-2 (Version None)
Quarter: 2010Q2

REPORT INFORMATION
  Report Type: 
  Country: None (occurrence: None)
  Receive Date: 20100421
  Receipt Date: 20100408
  Transmission Date: 20101027
  Serious: Yes (Other)
  Sender: FDA-Public Use
  Company Number: US-ELI_LILLY_AND_COMPANY-US201004003194

PATIENT
  Age: 46 Year
  Sex: Male

DRUGS (1)
  1. EFFIENT [Suspect]

REACTIONS (2)
  - HAEMATOMA [None]
  - MYOCARDIAL INFARCTION [None]
